FAERS Safety Report 24922967 (Version 1)
Quarter: 2025Q1

REPORT INFORMATION
  Report Type: Spontaneous
  Country: BR (occurrence: BR)
  Receive Date: 20250204
  Receipt Date: 20250204
  Transmission Date: 20250408
  Serious: Yes (Hospitalization)
  Sender: PFIZER
  Company Number: BR-PFIZER INC-PV202500012631

PATIENT
  Age: 33 Year
  Sex: Female

DRUGS (2)
  1. TALIGLUCERASE ALFA [Suspect]
     Active Substance: TALIGLUCERASE ALFA
     Indication: Gaucher^s disease
     Route: 042
     Dates: start: 20220414
  2. TALIGLUCERASE ALFA [Suspect]
     Active Substance: TALIGLUCERASE ALFA
     Route: 042
     Dates: start: 20250123, end: 20250123

REACTIONS (1)
  - Anal fistula [Unknown]

NARRATIVE: CASE EVENT DATE: 20241115
